FAERS Safety Report 24128434 (Version 2)
Quarter: 2024Q3

REPORT INFORMATION
  Report Type: Spontaneous
  Country: US (occurrence: US)
  Receive Date: 20240723
  Receipt Date: 20240903
  Transmission Date: 20241016
  Serious: Yes (Other)
  Sender: OTSUKA
  Company Number: US-OTSUKA-2024_020337

PATIENT
  Age: 73 Year
  Sex: Male

DRUGS (2)
  1. REXULTI [Suspect]
     Active Substance: BREXPIPRAZOLE
     Indication: Depression
     Dosage: 0.5 MG, QD
     Route: 048
     Dates: start: 20240718, end: 20240801
  2. REXULTI [Suspect]
     Active Substance: BREXPIPRAZOLE
     Indication: Major depression

REACTIONS (3)
  - Head injury [Unknown]
  - Loss of consciousness [Recovered/Resolved]
  - Dizziness [Recovered/Resolved]

NARRATIVE: CASE EVENT DATE: 20240718
